FAERS Safety Report 11409582 (Version 1)
Quarter: 2015Q3

REPORT INFORMATION
  Report Type: Spontaneous
  Country: SE (occurrence: SE)
  Receive Date: 20150824
  Receipt Date: 20150824
  Transmission Date: 20151125
  Serious: Yes (Other)
  Sender: FDA-Public Use
  Company Number: PHHY2015SE015221

PATIENT
  Age: 30 Year
  Sex: Female
  Weight: 104.8 kg

DRUGS (3)
  1. OXASCAND [Concomitant]
     Active Substance: OXAZEPAM
     Indication: ANXIETY
     Dosage: 0.45 MG, UNK
     Route: 065
     Dates: end: 20141223
  2. IMOVANE [Concomitant]
     Active Substance: ZOPICLONE
     Indication: PRODUCT USED FOR UNKNOWN INDICATION
     Dosage: 7.5 OT, UNK
     Route: 065
     Dates: end: 20141223
  3. RITALIN [Suspect]
     Active Substance: METHYLPHENIDATE HYDROCHLORIDE
     Indication: ATTENTION DEFICIT/HYPERACTIVITY DISORDER
     Dosage: 180 MG, UNK
     Route: 065
     Dates: end: 20141223

REACTIONS (5)
  - Pyelonephritis [Unknown]
  - Maternal exposure during pregnancy [Unknown]
  - Thrombosis [Unknown]
  - Placental disorder [Unknown]
  - Nephrolithiasis [Unknown]
